FAERS Safety Report 17965053 (Version 2)
Quarter: 2020Q3

REPORT INFORMATION
  Report Type: Spontaneous
  Country: FR (occurrence: FR)
  Receive Date: 20200630
  Receipt Date: 20200709
  Transmission Date: 20201103
  Serious: Yes (Death, Hospitalization, Other)
  Sender: FDA-Public Use
  Company Number: NVSC2020FR142541

PATIENT
  Age: 72 Year
  Sex: Female

DRUGS (11)
  1. TRIMETHOPRIM. [Suspect]
     Active Substance: TRIMETHOPRIM
     Indication: PNEUMOCYSTIS JIROVECII PNEUMONIA
     Dosage: 15 TO 20 MG/KG, QD
     Route: 065
  2. EXEMESTANE. [Suspect]
     Active Substance: EXEMESTANE
     Indication: BREAST CANCER METASTATIC
     Dosage: 25 MG, QD
     Route: 065
     Dates: start: 201901
  3. PREDNISONE. [Suspect]
     Active Substance: PREDNISONE
     Indication: PNEUMOCYSTIS JIROVECII PNEUMONIA
     Dosage: 1 MG/KG, QD
     Route: 065
  4. PREDNISOLONE. [Suspect]
     Active Substance: PREDNISOLONE
     Dosage: 40 MG, QD
     Route: 065
     Dates: start: 201905, end: 2019
  5. SULFAMETHOXAZOLE [Suspect]
     Active Substance: SULFAMETHOXAZOLE
     Indication: PNEUMOCYSTIS JIROVECII PNEUMONIA
     Dosage: 75 TO 100 MG/KG, QD
     Route: 065
  6. PREDNISOLONE. [Suspect]
     Active Substance: PREDNISOLONE
     Indication: PRODUCT USED FOR UNKNOWN INDICATION
     Dosage: 20 MG, QD
     Route: 065
     Dates: start: 2019
  7. PALBOCICLIB [Suspect]
     Active Substance: PALBOCICLIB
     Dosage: 125 MG, QD, PALBOCICLIB 125 MG PER DAY WAS THEN ADMINISTERED ORALLY IN 4?WEEK CYCLES (3 WEEKS OF TRE
     Route: 048
     Dates: start: 201901, end: 2019
  8. PREDNISONE. [Suspect]
     Active Substance: PREDNISONE
     Dosage: 20 MG QD
     Route: 065
     Dates: start: 2019
  9. PALBOCICLIB [Suspect]
     Active Substance: PALBOCICLIB
     Indication: BREAST CANCER METASTATIC
     Dosage: 125 MG, QD
     Route: 048
  10. PALBOCICLIB [Suspect]
     Active Substance: PALBOCICLIB
     Dosage: 100 MG, QD, ADJUSTED FROM 125 TO 100
     Route: 048
     Dates: start: 2019
  11. PREDNISONE. [Suspect]
     Active Substance: PREDNISONE
     Dosage: 40 MG QD
     Route: 065
     Dates: start: 201904

REACTIONS (18)
  - Enterococcal infection [Unknown]
  - Aspergillus infection [Unknown]
  - Drug ineffective for unapproved indication [Unknown]
  - Herpes simplex [Fatal]
  - Leukopenia [Unknown]
  - Epstein-Barr virus infection [Fatal]
  - Cytomegalovirus infection [Fatal]
  - Hypercalcaemia [Unknown]
  - Klebsiella infection [Unknown]
  - Infection reactivation [Unknown]
  - Pneumocystis jirovecii pneumonia [Fatal]
  - Myelosuppression [Fatal]
  - Viral infection [Fatal]
  - Lymphopenia [Fatal]
  - Anaemia [Unknown]
  - Cell-mediated immune deficiency [Fatal]
  - Neutropenia [Unknown]
  - Sepsis [Unknown]

NARRATIVE: CASE EVENT DATE: 2019
